FAERS Safety Report 5978267-8 (Version None)
Quarter: 2008Q4

REPORT INFORMATION
  Report Type: 
  Country: None (occurrence: None)
  Receive Date: 20081204
  Receipt Date: 20081103
  Transmission Date: 20090506
  Serious: No
  Sender: FDA-Public Use
  Company Number: US-BAYER-200831532NA

PATIENT

DRUGS (1)
  1. AVELOX [Suspect]
     Indication: SKIN INFECTION

REACTIONS (1)
  - SKIN INFECTION [None]
